FAERS Safety Report 11422974 (Version 1)
Quarter: 2015Q3

REPORT INFORMATION
  Report Type: Spontaneous
  Country: US (occurrence: None)
  Receive Date: 20150826
  Receipt Date: 20150826
  Transmission Date: 20151125
  Serious: Yes (Hospitalization)
  Sender: FDA-Public Use
  Company Number: None

PATIENT
  Age: 83 Year
  Sex: Male
  Weight: 97 kg

DRUGS (17)
  1. ASPIRIN. [Concomitant]
     Active Substance: ASPIRIN
  2. FERROUS GLUCONAE [Concomitant]
  3. MIRTAZAPINE. [Concomitant]
     Active Substance: MIRTAZAPINE
  4. TRAMADOL. [Concomitant]
     Active Substance: TRAMADOL
  5. ETOPOSIDE. [Concomitant]
     Active Substance: ETOPOSIDE
  6. ACETYLCYSTEINE. [Concomitant]
     Active Substance: ACETYLCYSTEINE
  7. CASODEX [Concomitant]
     Active Substance: BICALUTAMIDE
  8. VITAMIN D3 [Concomitant]
     Active Substance: CHOLECALCIFEROL
  9. MAG-OX [Concomitant]
     Active Substance: MAGNESIUM OXIDE
  10. PROTONIX [Concomitant]
     Active Substance: PANTOPRAZOLE SODIUM
  11. POTASSIUM CHLORIDE. [Concomitant]
     Active Substance: POTASSIUM CHLORIDE
  12. CISPLATIN. [Concomitant]
     Active Substance: CISPLATIN
  13. VITAMIN C [Concomitant]
     Active Substance: ASCORBIC ACID
  14. CIPROFLOXACIN. [Suspect]
     Active Substance: CIPROFLOXACIN
     Indication: URINARY TRACT INFECTION
     Route: 048
     Dates: start: 20150814, end: 20150818
  15. CIPRO [Concomitant]
     Active Substance: CIPROFLOXACIN HYDROCHLORIDE
  16. FLOMAX [Concomitant]
     Active Substance: TAMSULOSIN HYDROCHLORIDE
  17. TRIAZOLAM. [Concomitant]
     Active Substance: TRIAZOLAM

REACTIONS (5)
  - Tendon rupture [None]
  - Muscular weakness [None]
  - Arthralgia [None]
  - Malaise [None]
  - Pneumonia [None]

NARRATIVE: CASE EVENT DATE: 20150820
